FAERS Safety Report 9228350 (Version 1)
Quarter: 2013Q2

REPORT INFORMATION
  Report Type: Spontaneous
  Country: US (occurrence: US)
  Receive Date: 20130412
  Receipt Date: 20130412
  Transmission Date: 20140414
  Serious: Yes (Hospitalization)
  Sender: FDA-Public Use
  Company Number: US-GLAXOSMITHKLINE-A0718166A

PATIENT
  Age: 68 Year
  Sex: Male
  Weight: 112.7 kg

DRUGS (3)
  1. AVANDIA [Suspect]
     Indication: TYPE 2 DIABETES MELLITUS
     Dosage: 4MG TWICE PER DAY
     Route: 048
     Dates: start: 20000322, end: 200505
  2. INSULIN [Concomitant]
  3. ATENOLOL [Concomitant]
     Dates: start: 2000, end: 2002

REACTIONS (3)
  - Heart injury [Unknown]
  - Cardiac failure congestive [Unknown]
  - Myocardial ischaemia [Unknown]
